FAERS Safety Report 18616315 (Version 1)
Quarter: 2020Q4

REPORT INFORMATION
  Report Type: Spontaneous
  Country: US (occurrence: US)
  Receive Date: 20201214
  Receipt Date: 20201214
  Transmission Date: 20210114
  Serious: Yes (Hospitalization)
  Sender: FDA-Public Use
  Company Number: US-BEH-2020126163

PATIENT
  Age: 50 Year
  Sex: Female

DRUGS (1)
  1. HIZENTRA [Suspect]
     Active Substance: HUMAN IMMUNOGLOBULIN G
     Indication: SELECTIVE IGG SUBCLASS DEFICIENCY
     Dosage: 15 GRAM, QW
     Route: 058
     Dates: start: 20161104

REACTIONS (1)
  - Blood sodium decreased [Unknown]

NARRATIVE: CASE EVENT DATE: 20201115
